FAERS Safety Report 14874571 (Version 3)
Quarter: 2018Q3

REPORT INFORMATION
  Report Type: Spontaneous
  Country: JP (occurrence: JP)
  Receive Date: 20180510
  Receipt Date: 20180711
  Transmission Date: 20181010
  Serious: Yes (Death, Hospitalization)
  Sender: FDA-Public Use
  Company Number: JP-JNJFOC-20180511280

PATIENT
  Age: 53 Year
  Sex: Male

DRUGS (3)
  1. LYRICA [Concomitant]
     Active Substance: PREGABALIN
     Indication: PAIN
     Route: 048
  2. DUROTEP MT [Suspect]
     Active Substance: FENTANYL
     Indication: PAIN
     Route: 062
     Dates: start: 20180319, end: 20180328
  3. NORADRENALIN [Concomitant]
     Active Substance: NOREPINEPHRINE\NOREPINEPHRINE BITARTRATE
     Indication: BLOOD PRESSURE INCREASED
     Route: 065
     Dates: start: 20180328

REACTIONS (11)
  - Hypotension [Recovered/Resolved]
  - Snoring [Unknown]
  - Hydrocephalus [Fatal]
  - Cardiac arrest [Recovered/Resolved]
  - Pneumonia aspiration [Unknown]
  - Cerebral infarction [Unknown]
  - Somnolence [Unknown]
  - Cerebellar infarction [Fatal]
  - Hypoglycaemia [Unknown]
  - Loss of consciousness [Fatal]
  - Nausea [Unknown]

NARRATIVE: CASE EVENT DATE: 201803
